FAERS Safety Report 10767207 (Version 1)
Quarter: 2015Q1

REPORT INFORMATION
  Report Type: Spontaneous
  Country: US (occurrence: US)
  Receive Date: 20150205
  Receipt Date: 20150205
  Transmission Date: 20150721
  Serious: No
  Sender: FDA-Public Use
  Company Number: US-GALDERMA-US14003779

PATIENT
  Sex: Male

DRUGS (1)
  1. EPIDUO [Suspect]
     Active Substance: ADAPALENE\BENZOYL PEROXIDE
     Indication: ACNE
     Dosage: 0.1%/2.5%
     Route: 061

REACTIONS (5)
  - Eyelid oedema [Unknown]
  - Skin fissures [Unknown]
  - Emotional distress [Unknown]
  - Erythema of eyelid [Unknown]
  - Dry skin [Unknown]
